FAERS Safety Report 10854995 (Version 1)
Quarter: 2015Q1

REPORT INFORMATION
  Report Type: Spontaneous
  Country: US (occurrence: None)
  Receive Date: 20150218
  Receipt Date: 20150218
  Transmission Date: 20150721
  Serious: Yes (Life-Threatening, Hospitalization)
  Sender: FDA-Public Use
  Company Number: None

PATIENT
  Age: 42 Year
  Sex: Female
  Weight: 63.5 kg

DRUGS (1)
  1. NEURONTIN [Suspect]
     Active Substance: GABAPENTIN
     Dosage: 90
     Route: 048

REACTIONS (9)
  - Pyrexia [None]
  - Weight increased [None]
  - Drug withdrawal syndrome [None]
  - Nerve injury [None]
  - Drug dependence [None]
  - Influenza like illness [None]
  - Pruritus [None]
  - Panic attack [None]
  - Gastrointestinal disorder [None]
